FAERS Safety Report 4552908-4 (Version None)
Quarter: 2005Q1

REPORT INFORMATION
  Report Type: 
  Country: None (occurrence: None)
  Receive Date: 20050114
  Receipt Date: 20041230
  Transmission Date: 20050727
  Serious: Yes (Hospitalization)
  Sender: FDA-Public Use
  Company Number: DK-JNJFOC-20041103949

PATIENT
  Sex: Female
  Weight: 110 kg

DRUGS (6)
  1. NORETHINDRONE ACETATE AND ETHINYL ESTRADIOL [Suspect]
     Route: 049
  2. NORETHINDRONE ACETATE AND ETHINYL ESTRADIOL [Suspect]
     Indication: CONTRACEPTION
     Dosage: TAKEN FOR 'MANY YEARS'
     Route: 049
  3. ORABET [Concomitant]
  4. INSULATARD NPH HUMAN [Concomitant]
  5. ACTRAPID [Concomitant]
  6. FERRODURETTER [Concomitant]

REACTIONS (3)
  - ANAEMIA [None]
  - EPISTAXIS [None]
  - THROMBOSIS [None]
